FAERS Safety Report 22219138 (Version 2)
Quarter: 2023Q2

REPORT INFORMATION
  Report Type: Spontaneous
  Country: CN (occurrence: CN)
  Receive Date: 20230417
  Receipt Date: 20230512
  Transmission Date: 20230721
  Serious: Yes (Hospitalization, Other)
  Sender: FDA-Public Use
  Company Number: CN-SA-SAC20230414001079

PATIENT
  Age: 32 Year
  Sex: Female

DRUGS (1)
  1. PREDNISOLONE [Suspect]
     Active Substance: PREDNISOLONE
     Indication: Systemic lupus erythematosus
     Dosage: 10-15 MG QD

REACTIONS (7)
  - Atypical mycobacterial infection [Recovering/Resolving]
  - Intervertebral disc disorder [Recovering/Resolving]
  - Vertebral lesion [Recovering/Resolving]
  - Abscess [Recovering/Resolving]
  - Tenderness [Recovering/Resolving]
  - Pyrexia [Recovering/Resolving]
  - Rash [Recovering/Resolving]

NARRATIVE: CASE EVENT DATE: 20210101
